FAERS Safety Report 19395201 (Version 2)
Quarter: 2021Q2

REPORT INFORMATION
  Report Type: Spontaneous
  Country: US (occurrence: US)
  Receive Date: 20210609
  Receipt Date: 20210610
  Transmission Date: 20210717
  Serious: Yes (Hospitalization)
  Sender: FDA-Public Use
  Company Number: US-ASTRAZENECA-2021A489041

PATIENT
  Age: 73 Year
  Sex: Female

DRUGS (2)
  1. MODERNA [Concomitant]
  2. FARXIGA [Suspect]
     Active Substance: DAPAGLIFLOZIN PROPANEDIOL
     Indication: CARDIAC FAILURE
     Route: 048

REACTIONS (1)
  - Diabetic ketoacidosis [Recovered/Resolved]
